FAERS Safety Report 7931372-9 (Version None)
Quarter: 2011Q4

REPORT INFORMATION
  Report Type: 
  Country: None (occurrence: None)
  Receive Date: 20111121
  Receipt Date: 20101026
  Transmission Date: 20120403
  Serious: Yes (Hospitalization, Other)
  Sender: FDA-Public Use
  Company Number: US-BAYER-201024036NA

PATIENT
  Age: 27 Year
  Sex: Female
  Weight: 49 kg

DRUGS (16)
  1. YAZ [Suspect]
     Indication: CONTRACEPTION
     Dosage: UNK UNK, QD
     Route: 048
     Dates: start: 20060101, end: 20090801
  2. YAZ [Suspect]
     Indication: PREMENSTRUAL SYNDROME
  3. NEXIUM [Concomitant]
  4. IBUPROFEN [Concomitant]
     Dosage: UNK
     Dates: start: 20100326
  5. NAPROXEN [Concomitant]
  6. KETOROLAC TROMETHAMINE [Concomitant]
     Dosage: UNK
     Dates: start: 20090812
  7. KETOPROFEN [Concomitant]
  8. XANAX [Concomitant]
     Dosage: 0.25 MG, PRN
  9. BENADRYL [Concomitant]
     Dosage: UNK UNK, PRN
  10. MOTOFEN [Concomitant]
  11. INDOMETHACIN [Concomitant]
     Dosage: UNK
     Dates: start: 20051226
  12. ALLEGRA [Concomitant]
  13. INDOMETHACIN [Concomitant]
     Dosage: UNK
     Dates: start: 20091123
  14. CELEBREX [Concomitant]
  15. CIPROFLOXACIN [Concomitant]
  16. TYLENOL ES [Concomitant]
     Dosage: UNK UNK, PRN

REACTIONS (6)
  - CHOLELITHIASIS [None]
  - CHOLESTEROSIS [None]
  - GALLBLADDER DISORDER [None]
  - GALLBLADDER ENLARGEMENT [None]
  - PAIN [None]
  - VOMITING [None]
